FAERS Safety Report 4300945-7 (Version None)
Quarter: 2004Q1

REPORT INFORMATION
  Report Type: 
  Country: None (occurrence: None)
  Receive Date: 20040219
  Receipt Date: 20040209
  Transmission Date: 20041129
  Serious: No
  Sender: FDA-Public Use
  Company Number: 2004194618DE

PATIENT
  Age: 80 Year
  Sex: Male
  Weight: 82 kg

DRUGS (5)
  1. ZYVOX [Suspect]
     Indication: INFECTION
     Dosage: 600 MG, BID, ORAL
     Route: 048
     Dates: start: 20031211
  2. RAMIPRIL [Concomitant]
  3. ASPIRIN [Concomitant]
  4. ROFECOXIB [Concomitant]
  5. ALLOPURINOL [Concomitant]

REACTIONS (4)
  - BLOOD PRESSURE INCREASED [None]
  - DIZZINESS [None]
  - DRUG INTERACTION [None]
  - HEADACHE [None]
